FAERS Safety Report 16883930 (Version 1)
Quarter: 2019Q4

REPORT INFORMATION
  Report Type: Spontaneous
  Country: US (occurrence: US)
  Receive Date: 20191004
  Receipt Date: 20191004
  Transmission Date: 20200122
  Serious: No
  Sender: FDA-Public Use
  Company Number: US-MELINTA THERAPEUTICS, INC-US-MLNT-18-00327

PATIENT
  Age: 87 Year
  Sex: Male
  Weight: 87.17 kg

DRUGS (4)
  1. ORBACTIV [Suspect]
     Active Substance: ORITAVANCIN
     Indication: STAPHYLOCOCCAL INFECTION
     Route: 041
     Dates: start: 20181019, end: 20181019
  2. TYLENOL [Concomitant]
     Active Substance: ACETAMINOPHEN
     Indication: PRODUCT USED FOR UNKNOWN INDICATION
     Route: 048
     Dates: start: 20181019
  3. LORATADINE. [Concomitant]
     Active Substance: LORATADINE
     Indication: PRODUCT USED FOR UNKNOWN INDICATION
     Route: 048
     Dates: start: 20181019
  4. FAMOTIDINE. [Concomitant]
     Active Substance: FAMOTIDINE
     Indication: PRODUCT USED FOR UNKNOWN INDICATION
     Route: 042

REACTIONS (6)
  - Flushing [Recovered/Resolved]
  - Musculoskeletal chest pain [Recovered/Resolved]
  - Back pain [Recovered/Resolved]
  - Tremor [Recovered/Resolved]
  - Chills [Recovered/Resolved]
  - Feeling cold [Recovered/Resolved]

NARRATIVE: CASE EVENT DATE: 20181019
